FAERS Safety Report 8208040 (Version 2)
Quarter: 2013Q1

REPORT INFORMATION
  Report Type: Spontaneous
  Country: US (occurrence: US)
  Receive Date: 20111028
  Receipt Date: 20130218
  Transmission Date: 20140127
  Serious: Yes (Other)
  Sender: FDA-Public Use
  Company Number: US-ROCHE-1007576

PATIENT
  Sex: Male
  Weight: 54.48 kg

DRUGS (1)
  1. ACCUTANE [Suspect]
     Indication: ACNE
     Route: 065
     Dates: start: 19840123, end: 19850131

REACTIONS (6)
  - Colitis ulcerative [Unknown]
  - Inflammatory bowel disease [Unknown]
  - Injury [Unknown]
  - Crohn^s disease [Unknown]
  - Intestinal haemorrhage [Unknown]
  - Depression [Unknown]
